FAERS Safety Report 10414757 (Version 1)
Quarter: 2014Q2

REPORT INFORMATION
  Report Type: Spontaneous
  Country: US (occurrence: None)
  Receive Date: 20140514
  Receipt Date: 20140514
  Transmission Date: 20141212
  Serious: Yes (Hospitalization, Other)
  Sender: FDA-Public Use
  Company Number: 108250U

PATIENT
  Sex: Male
  Weight: 98.9 kg

DRUGS (1)
  1. CIMZIA [Suspect]
     Indication: CROHN^S DISEASE
     Dosage: 400 MG 1X/MONTH?400MG 1X/ 3 WEEKS?400 MG 1X/4 WEEKS?
     Dates: start: 2011

REACTIONS (8)
  - Intestinal haemorrhage [None]
  - Abdominal mass [None]
  - Anaesthetic complication [None]
  - Heart rate increased [None]
  - Hypotension [None]
  - Pain [None]
  - Diarrhoea [None]
  - Inappropriate schedule of drug administration [None]
